FAERS Safety Report 4400635-6 (Version None)
Quarter: 2004Q3

REPORT INFORMATION
  Report Type: 
  Country: None (occurrence: None)
  Receive Date: 20040716
  Receipt Date: 20040716
  Transmission Date: 20050211
  Serious: Yes (Life-Threatening, Hospitalization)
  Sender: FDA-Public Use
  Company Number: None

PATIENT
  Age: 47 Year
  Sex: Female
  Weight: 94.575 kg

DRUGS (4)
  1. CYTOXAN [Suspect]
     Indication: NON-HODGKIN'S LYMPHOMA
     Dosage: Q 2 WKS IV
     Route: 042
     Dates: start: 20040708
  2. DOXORUBICIN HCL [Suspect]
  3. VINCRISTINE [Suspect]
  4. RITUXAN [Concomitant]

REACTIONS (6)
  - BLOOD PRESSURE DECREASED [None]
  - CHILLS [None]
  - HYPERVENTILATION [None]
  - HYPOTHERMIA [None]
  - NECK PAIN [None]
  - PYREXIA [None]
